FAERS Safety Report 20969114 (Version 1)
Quarter: 2022Q2

REPORT INFORMATION
  Report Type: Spontaneous
  Country: US (occurrence: US)
  Receive Date: 20220616
  Receipt Date: 20220616
  Transmission Date: 20220721
  Serious: No
  Sender: FDA-Public Use
  Company Number: US-MYLANLABS-2022M1042467

PATIENT
  Age: 62 Year
  Sex: Female
  Weight: 69.85 kg

DRUGS (2)
  1. LIDOCAINE PATCH [Suspect]
     Active Substance: LIDOCAINE
     Indication: Spinal operation
     Dosage: 5 PERCENT, BID (ONE PATCH EVERY 12 HOURS)
     Route: 003
     Dates: start: 20220525
  2. MORPHINE [Concomitant]
     Active Substance: MORPHINE
     Indication: Spinal operation
     Dosage: UNK, TID

REACTIONS (4)
  - Product adhesion issue [Unknown]
  - Drug delivery system issue [Unknown]
  - Product use in unapproved indication [Unknown]
  - Wrong technique in product usage process [Unknown]

NARRATIVE: CASE EVENT DATE: 20220525
